FAERS Safety Report 5898010-0 (Version None)
Quarter: 2008Q3

REPORT INFORMATION
  Report Type: 
  Country: None (occurrence: None)
  Receive Date: 20080924
  Receipt Date: 20080924
  Transmission Date: 20090109
  Serious: No
  Sender: FDA-Public Use
  Company Number: None

PATIENT
  Age: 62 Year
  Weight: 139.03 kg

DRUGS (2)
  1. MINOXIDIL [Suspect]
     Indication: HYPERTENSION
     Dosage: 10 MG EVERYDAY PO
     Route: 048
     Dates: start: 20080911, end: 20080918
  2. MINOXIDIL [Suspect]
     Dosage: 5 MG EVERY DAY PO
     Route: 048
     Dates: start: 20080909, end: 20080911

REACTIONS (9)
  - CARDIAC FAILURE CHRONIC [None]
  - INSULIN-REQUIRING TYPE 2 DIABETES MELLITUS [None]
  - OBESITY [None]
  - OEDEMA PERIPHERAL [None]
  - PETECHIAE [None]
  - PULMONARY OEDEMA [None]
  - PURPURA [None]
  - UMBILICAL HERNIA [None]
  - WOUND [None]
